FAERS Safety Report 6624097-3 (Version None)
Quarter: 2010Q1

REPORT INFORMATION
  Report Type: 
  Country: None (occurrence: None)
  Receive Date: 20100310
  Receipt Date: 20100301
  Transmission Date: 20100710
  Serious: Yes (Hospitalization)
  Sender: FDA-Public Use
  Company Number: IT-PFIZER INC-2010012041

PATIENT
  Age: 67 Year
  Sex: Female

DRUGS (2)
  1. CYTARABINE [Suspect]
     Indication: ACUTE MYELOID LEUKAEMIA
     Dosage: 266 MG, X/DAY
     Route: 042
     Dates: start: 20090609, end: 20090615
  2. ZAVEDOS [Suspect]
     Indication: ACUTE MYELOID LEUKAEMIA
     Dosage: 18 MG, X/DAY
     Route: 042
     Dates: start: 20090609, end: 20090611

REACTIONS (3)
  - HYPERPYREXIA [None]
  - PNEUMONIA BACTERIAL [None]
  - STAPHYLOCOCCAL SEPSIS [None]
